FAERS Safety Report 6968598-7 (Version None)
Quarter: 2010Q3

REPORT INFORMATION
  Report Type: 
  Country: None (occurrence: None)
  Receive Date: 20100907
  Receipt Date: 20100830
  Transmission Date: 20110219
  Serious: No
  Sender: FDA-Public Use
  Company Number: US-JNJFOC-20100901182

PATIENT
  Sex: Male
  Weight: 63.5 kg

DRUGS (4)
  1. FENTANYL CITRATE [Suspect]
     Indication: FLANK PAIN
     Route: 062
  2. OXYBUTYNIN [Concomitant]
     Indication: BLADDER DISORDER
     Route: 048
  3. OPANA [Concomitant]
     Indication: PAIN
     Route: 048
  4. OXYCODONE [Concomitant]
     Indication: BREAKTHROUGH PAIN
     Route: 048

REACTIONS (1)
  - WRONG TECHNIQUE IN DRUG USAGE PROCESS [None]
